FAERS Safety Report 5333054-9 (Version None)
Quarter: 2007Q2

REPORT INFORMATION
  Report Type: 
  Country: None (occurrence: None)
  Receive Date: 20070521
  Receipt Date: 20070521
  Transmission Date: 20071010
  Serious: Yes (Death)
  Sender: FDA-Public Use
  Company Number: None

PATIENT
  Sex: Male
  Weight: 94.8 kg

DRUGS (8)
  1. CRESTOR [Suspect]
     Indication: HYPERLIPIDAEMIA
     Dosage: DAILY 047
     Dates: start: 20040304, end: 20041201
  2. CRESTOR [Suspect]
     Indication: HYPERLIPIDAEMIA
     Dosage: DAILY 047
     Dates: start: 20060301, end: 20070123
  3. PLAVIX [Suspect]
     Indication: CORONARY ARTERY DISEASE
     Dosage: 75 MG DAILY 047
     Dates: start: 20061001, end: 20070123
  4. BENICAR HCT [Concomitant]
  5. PRILOSEC [Concomitant]
  6. NOVELOX R [Concomitant]
  7. DARVOCET-N 100 [Concomitant]
  8. NOVOLIN N [Concomitant]

REACTIONS (6)
  - DEHYDRATION [None]
  - GENERAL PHYSICAL HEALTH DETERIORATION [None]
  - HEPATIC FAILURE [None]
  - RENAL FAILURE [None]
  - RESPIRATORY FAILURE [None]
  - VIRAL INFECTION [None]
